FAERS Safety Report 23652488 (Version 1)
Quarter: 2024Q1

REPORT INFORMATION
  Report Type: Other
  Country: JP (occurrence: JP)
  Receive Date: 20240320
  Receipt Date: 20240320
  Transmission Date: 20240410
  Serious: Yes (Death, Hospitalization, Other)
  Sender: FDA-Public Use
  Company Number: JP-CHUGAI-2023038867

PATIENT
  Age: 59 Year
  Sex: Female
  Weight: 64.8 kg

DRUGS (16)
  1. GAZYVA [Suspect]
     Active Substance: OBINUTUZUMAB
     Indication: Follicular lymphoma
     Dosage: 30/JUN/2020 MOST RECENT DOSE
     Route: 042
     Dates: start: 20200630, end: 20200630
  2. GAZYVA [Suspect]
     Active Substance: OBINUTUZUMAB
     Dosage: 07/JUL/2020 MOST RECENT DOSE
     Route: 042
     Dates: start: 20200707, end: 20200707
  3. GAZYVA [Suspect]
     Active Substance: OBINUTUZUMAB
     Dosage: 03/AUG/2020 RECENT DOSE RECEIVED
     Route: 042
     Dates: start: 20200803, end: 20200803
  4. GAZYVA [Suspect]
     Active Substance: OBINUTUZUMAB
     Dosage: 11/SEP/2020 RECENT DOSE RECEIVED
     Route: 042
     Dates: start: 20200911, end: 20200911
  5. GAZYVA [Suspect]
     Active Substance: OBINUTUZUMAB
     Dosage: 14/OCT/2020 RECENT DOSE RECEIVED
     Route: 042
     Dates: start: 20201014, end: 20201014
  6. GAZYVA [Suspect]
     Active Substance: OBINUTUZUMAB
     Dosage: 25/NOV/2020 RECENT DOSE RECEIVED
     Route: 042
     Dates: start: 20201125, end: 20201125
  7. GAZYVA [Suspect]
     Active Substance: OBINUTUZUMAB
     Dosage: 05/JAN/2021 RECENT DOSE RECEIVED
     Route: 042
     Dates: start: 20210105, end: 20210105
  8. GAZYVA [Suspect]
     Active Substance: OBINUTUZUMAB
     Dosage: 26/MAR/2021 RECENT DOSE RECEIVED
     Route: 042
     Dates: start: 20210326, end: 20210326
  9. GAZYVA [Suspect]
     Active Substance: OBINUTUZUMAB
     Dosage: 18/JUN/2021 RECENT DOSE RECEIVED
     Route: 042
     Dates: start: 20210618, end: 20210618
  10. GAZYVA [Suspect]
     Active Substance: OBINUTUZUMAB
     Dosage: 20/AUG/2021 RECENT DOSE RECEIVED
     Route: 042
     Dates: start: 20210820, end: 20210820
  11. GAZYVA [Suspect]
     Active Substance: OBINUTUZUMAB
     Dosage: 19/NOV/2021 RECENT DOSE RECEIVED
     Route: 042
     Dates: start: 20211119, end: 20211119
  12. GAZYVA [Suspect]
     Active Substance: OBINUTUZUMAB
     Dosage: 18/FEB/2022 RECENT DOSE RECEIVED
     Route: 042
     Dates: start: 20220218, end: 20220218
  13. GAZYVA [Suspect]
     Active Substance: OBINUTUZUMAB
     Dosage: 13/MAY/2022 RECENT DOSE RECEIVED
     Route: 042
     Dates: start: 20220513, end: 20220513
  14. GAZYVA [Suspect]
     Active Substance: OBINUTUZUMAB
     Dosage: 05/AUG/2022 RECENT DOSE RECEIVED
     Route: 042
     Dates: start: 20220805, end: 20220805
  15. GAZYVA [Suspect]
     Active Substance: OBINUTUZUMAB
     Route: 042
     Dates: start: 20221028, end: 20221028
  16. BENDAMUSTINE HYDROCHLORIDE [Concomitant]
     Active Substance: BENDAMUSTINE HYDROCHLORIDE
     Indication: Follicular lymphoma
     Dates: start: 20200623, end: 20210113

REACTIONS (5)
  - COVID-19 pneumonia [Fatal]
  - Lung infiltration [Recovering/Resolving]
  - COVID-19 pneumonia [Recovering/Resolving]
  - COVID-19 [Recovering/Resolving]
  - Cough [Unknown]

NARRATIVE: CASE EVENT DATE: 20220101
